FAERS Safety Report 24706110 (Version 2)
Quarter: 2025Q1

REPORT INFORMATION
  Report Type: Spontaneous
  Country: JP (occurrence: JP)
  Receive Date: 20241206
  Receipt Date: 20250106
  Transmission Date: 20250408
  Serious: Yes (Hospitalization, Other)
  Sender: ELI LILLY AND COMPANY
  Company Number: JP-ELI_LILLY_AND_COMPANY-JP202412000081

PATIENT
  Age: 73 Year
  Sex: Male

DRUGS (2)
  1. CYRAMZA [Suspect]
     Active Substance: RAMUCIRUMAB
     Indication: Colon cancer recurrent
     Route: 041
  2. IRINOTECAN [Suspect]
     Active Substance: IRINOTECAN
     Indication: Colon cancer recurrent
     Route: 041

REACTIONS (6)
  - Peritonitis [Unknown]
  - Peritonitis [Unknown]
  - Peritonitis [Unknown]
  - Mechanical ileus [Unknown]
  - Septic shock [Unknown]
  - Jejunal perforation [Recovered/Resolved with Sequelae]
